FAERS Safety Report 6658671-5 (Version None)
Quarter: 2010Q1

REPORT INFORMATION
  Report Type: 
  Country: None (occurrence: None)
  Receive Date: 20100330
  Receipt Date: 20100318
  Transmission Date: 20100710
  Serious: Yes (Other)
  Sender: FDA-Public Use
  Company Number: PHHY2010DE11101

PATIENT
  Sex: Male

DRUGS (1)
  1. EXTAVIA [Suspect]
     Indication: MULTIPLE SCLEROSIS
     Dosage: 250 MCG EVERY OTHER DAY
     Route: 058
     Dates: start: 20091019

REACTIONS (6)
  - EYE IRRITATION [None]
  - EYE PAIN [None]
  - HYPOAESTHESIA FACIAL [None]
  - RHINORRHOEA [None]
  - VISUAL EVOKED POTENTIALS ABNORMAL [None]
  - VISUAL IMPAIRMENT [None]
